FAERS Safety Report 7383144-4 (Version None)
Quarter: 2011Q1

REPORT INFORMATION
  Report Type: 
  Country: None (occurrence: None)
  Receive Date: 20110330
  Receipt Date: 20110328
  Transmission Date: 20110831
  Serious: Yes (Hospitalization, Other)
  Sender: FDA-Public Use
  Company Number: JP-SANOFI-AVENTIS-2009SA004289

PATIENT
  Age: 81 Year
  Sex: Male
  Weight: 63 kg

DRUGS (13)
  1. TAXOTERE [Suspect]
     Dates: start: 20090930, end: 20090930
  2. TAKEPRON [Concomitant]
     Route: 048
  3. TAXOTERE [Suspect]
     Dates: start: 20100324, end: 20100324
  4. PREDNISOLONE [Concomitant]
     Indication: PROSTATE CANCER
     Route: 048
     Dates: start: 20090518
  5. TAXOTERE [Suspect]
     Dates: start: 20091111, end: 20091111
  6. TAXOTERE [Suspect]
     Dates: start: 20091221, end: 20091221
  7. TAXOTERE [Suspect]
     Dates: start: 20100507, end: 20100507
  8. TAXOTERE [Suspect]
     Indication: PROSTATE CANCER
     Dates: start: 20090522, end: 20090522
  9. TAXOTERE [Suspect]
     Dates: start: 20100208, end: 20100208
  10. TAXOTERE [Suspect]
     Dates: start: 20090703, end: 20090703
  11. TAXOTERE [Suspect]
     Dates: start: 20090812, end: 20090812
  12. LEUPLIN [Concomitant]
     Indication: PROSTATE CANCER
     Route: 058
     Dates: start: 20071106
  13. ANTIANDROGENS [Concomitant]
     Dates: end: 20080903

REACTIONS (2)
  - CEREBRAL HAEMORRHAGE [None]
  - MALAISE [None]
